FAERS Safety Report 13485172 (Version 3)
Quarter: 2017Q2

REPORT INFORMATION
  Report Type: Spontaneous
  Country: FR (occurrence: FR)
  Receive Date: 20170425
  Receipt Date: 20170620
  Transmission Date: 20170830
  Serious: Yes (Death, Life-Threatening, Hospitalization, Other)
  Sender: FDA-Public Use
  Company Number: FR-AUROBINDO-AUR-APL-2017-32885

PATIENT
  Age: 29 Year
  Sex: Male

DRUGS (6)
  1. IBUPROFEN. [Suspect]
     Active Substance: IBUPROFEN
     Indication: PAIN
  2. IBUPROFEN. [Suspect]
     Active Substance: IBUPROFEN
     Indication: SINUSITIS
     Dosage: UNK
     Route: 065
  3. KETOPROFEN. [Suspect]
     Active Substance: KETOPROFEN
     Indication: SINUSITIS
     Route: 065
  4. ZOLMITRIPTAN. [Concomitant]
     Active Substance: ZOLMITRIPTAN
     Indication: SINUSITIS
  5. PARACETAMOL [Suspect]
     Active Substance: ACETAMINOPHEN
     Indication: SINUSITIS
     Route: 065
  6. CEFPODOXIME PROXETIL. [Concomitant]
     Active Substance: CEFPODOXIME PROXETIL
     Indication: SINUSITIS
     Route: 065

REACTIONS (22)
  - Brain death [Fatal]
  - Meningoencephalitis bacterial [Fatal]
  - Musculoskeletal stiffness [Fatal]
  - Vertigo [Unknown]
  - Agitation [Fatal]
  - Leukocytosis [Fatal]
  - Consciousness fluctuating [Fatal]
  - Agitation [Unknown]
  - Disorientation [Fatal]
  - CSF test abnormal [Fatal]
  - Photophobia [Unknown]
  - Tachycardia [Unknown]
  - Hemiplegia [Fatal]
  - Musculoskeletal stiffness [Unknown]
  - Headache [Unknown]
  - Aphasia [Fatal]
  - Hemianopia [Fatal]
  - Coma [Fatal]
  - Nystagmus [Fatal]
  - Brain herniation [Fatal]
  - Brain oedema [Fatal]
  - Pyrexia [Unknown]
